FAERS Safety Report 17975398 (Version 1)
Quarter: 2020Q3

REPORT INFORMATION
  Report Type: Spontaneous
  Country: FR (occurrence: FR)
  Receive Date: 20200702
  Receipt Date: 20200702
  Transmission Date: 20201103
  Serious: Yes (Other)
  Sender: FDA-Public Use
  Company Number: FR-PFIZER INC-2020254909

PATIENT
  Age: 83 Year
  Sex: Male
  Weight: 70 kg

DRUGS (2)
  1. PREGABALIN. [Suspect]
     Active Substance: PREGABALIN
     Indication: NEURALGIA
     Dosage: 180 MG, 1X/DAY
     Route: 048
     Dates: start: 20200406, end: 20200420
  2. ALIMEMAZINE [Suspect]
     Active Substance: TRIMEPRAZINE
     Indication: SLEEP DISORDER
     Dosage: 10 DROP, 1X/DAY
     Route: 048
     Dates: start: 20200228, end: 20200420

REACTIONS (2)
  - Pancytopenia [Recovered/Resolved]
  - Condition aggravated [Recovered/Resolved]

NARRATIVE: CASE EVENT DATE: 20200420
